FAERS Safety Report 11220899 (Version 1)
Quarter: 2015Q2

REPORT INFORMATION
  Report Type: Spontaneous
  Country: US (occurrence: None)
  Receive Date: 20150625
  Receipt Date: 20150625
  Transmission Date: 20150821
  Serious: No
  Sender: FDA-Public Use
  Company Number: None

PATIENT
  Sex: Female

DRUGS (1)
  1. FORTEO [Suspect]
     Active Substance: TERIPARATIDE
     Indication: ILL-DEFINED DISORDER
     Dosage: 20MCG, DAILY, SUB Q
     Route: 058
     Dates: start: 20150402

REACTIONS (2)
  - Ligament sprain [None]
  - Muscle spasms [None]
